FAERS Safety Report 19921360 (Version 14)
Quarter: 2025Q3

REPORT INFORMATION
  Report Type: Spontaneous
  Country: CA (occurrence: CA)
  Receive Date: 20211005
  Receipt Date: 20250827
  Transmission Date: 20251020
  Serious: Yes (Hospitalization, Other)
  Sender: MYLAN
  Company Number: CA-PFIZER INC-2021733163

PATIENT
  Age: 75 Year
  Sex: Female

DRUGS (156)
  1. REVATIO [Suspect]
     Active Substance: SILDENAFIL CITRATE
     Indication: Pulmonary arterial hypertension
     Dosage: 20 MILLIGRAM, TID (THREE TIMES A DAY)
     Route: 048
     Dates: start: 20210104
  2. REVATIO [Suspect]
     Active Substance: SILDENAFIL CITRATE
     Dosage: 20 MILLIGRAM, TID (THREE TIMES A DAY)
     Dates: start: 20210104
  3. REVATIO [Suspect]
     Active Substance: SILDENAFIL CITRATE
     Dosage: 20 MILLIGRAM, TID (THREE TIMES A DAY)
     Dates: start: 20210104
  4. REVATIO [Suspect]
     Active Substance: SILDENAFIL CITRATE
     Dosage: 20 MILLIGRAM, TID (THREE TIMES A DAY)
     Route: 048
     Dates: start: 20210104
  5. REVATIO [Suspect]
     Active Substance: SILDENAFIL CITRATE
     Dosage: 20 MILLIGRAM, TID (3 EVERY 1 DAYS)
     Route: 048
  6. REVATIO [Suspect]
     Active Substance: SILDENAFIL CITRATE
     Dosage: 20 MILLIGRAM, TID (3 EVERY 1 DAYS)
  7. REVATIO [Suspect]
     Active Substance: SILDENAFIL CITRATE
     Dosage: 20 MILLIGRAM, TID (3 EVERY 1 DAYS)
  8. REVATIO [Suspect]
     Active Substance: SILDENAFIL CITRATE
     Dosage: 20 MILLIGRAM, TID (3 EVERY 1 DAYS)
     Route: 048
  9. ATENOLOL [Concomitant]
     Active Substance: ATENOLOL
  10. ATENOLOL [Concomitant]
     Active Substance: ATENOLOL
     Route: 065
  11. ATENOLOL [Concomitant]
     Active Substance: ATENOLOL
     Route: 065
  12. ATENOLOL [Concomitant]
     Active Substance: ATENOLOL
  13. ASPIRIN [Concomitant]
     Active Substance: ASPIRIN
     Indication: Product used for unknown indication
  14. ASPIRIN [Concomitant]
     Active Substance: ASPIRIN
     Route: 065
  15. ASPIRIN [Concomitant]
     Active Substance: ASPIRIN
     Route: 065
  16. ASPIRIN [Concomitant]
     Active Substance: ASPIRIN
  17. BACLOFEN [Concomitant]
     Active Substance: BACLOFEN
  18. BACLOFEN [Concomitant]
     Active Substance: BACLOFEN
     Route: 065
  19. BACLOFEN [Concomitant]
     Active Substance: BACLOFEN
     Route: 065
  20. BACLOFEN [Concomitant]
     Active Substance: BACLOFEN
  21. BREO ELLIPTA [Concomitant]
     Active Substance: FLUTICASONE FUROATE\VILANTEROL TRIFENATATE
  22. BREO ELLIPTA [Concomitant]
     Active Substance: FLUTICASONE FUROATE\VILANTEROL TRIFENATATE
     Route: 065
  23. BREO ELLIPTA [Concomitant]
     Active Substance: FLUTICASONE FUROATE\VILANTEROL TRIFENATATE
     Route: 065
  24. BREO ELLIPTA [Concomitant]
     Active Substance: FLUTICASONE FUROATE\VILANTEROL TRIFENATATE
  25. CALCIUM [Concomitant]
     Active Substance: CALCIUM
  26. CALCIUM [Concomitant]
     Active Substance: CALCIUM
     Route: 065
  27. CALCIUM [Concomitant]
     Active Substance: CALCIUM
     Route: 065
  28. CALCIUM [Concomitant]
     Active Substance: CALCIUM
  29. VITAMINS [Concomitant]
     Active Substance: VITAMINS
  30. VITAMINS [Concomitant]
     Active Substance: VITAMINS
     Route: 065
  31. VITAMINS [Concomitant]
     Active Substance: VITAMINS
     Route: 065
  32. VITAMINS [Concomitant]
     Active Substance: VITAMINS
  33. MINERALS\VITAMINS [Concomitant]
     Active Substance: MINERALS\VITAMINS
  34. MINERALS\VITAMINS [Concomitant]
     Active Substance: MINERALS\VITAMINS
     Route: 065
  35. MINERALS\VITAMINS [Concomitant]
     Active Substance: MINERALS\VITAMINS
     Route: 065
  36. MINERALS\VITAMINS [Concomitant]
     Active Substance: MINERALS\VITAMINS
  37. EXEMESTANE [Concomitant]
     Active Substance: EXEMESTANE
  38. EXEMESTANE [Concomitant]
     Active Substance: EXEMESTANE
     Route: 065
  39. EXEMESTANE [Concomitant]
     Active Substance: EXEMESTANE
     Route: 065
  40. EXEMESTANE [Concomitant]
     Active Substance: EXEMESTANE
  41. FUROSEMIDE [Concomitant]
     Active Substance: FUROSEMIDE
  42. FUROSEMIDE [Concomitant]
     Active Substance: FUROSEMIDE
     Route: 065
  43. FUROSEMIDE [Concomitant]
     Active Substance: FUROSEMIDE
     Route: 065
  44. FUROSEMIDE [Concomitant]
     Active Substance: FUROSEMIDE
  45. GLICLAZIDE [Concomitant]
     Active Substance: GLICLAZIDE
  46. GLICLAZIDE [Concomitant]
     Active Substance: GLICLAZIDE
     Route: 065
  47. GLICLAZIDE [Concomitant]
     Active Substance: GLICLAZIDE
     Route: 065
  48. GLICLAZIDE [Concomitant]
     Active Substance: GLICLAZIDE
  49. LANTUS [Concomitant]
     Active Substance: INSULIN GLARGINE
  50. LANTUS [Concomitant]
     Active Substance: INSULIN GLARGINE
     Route: 065
  51. LANTUS [Concomitant]
     Active Substance: INSULIN GLARGINE
     Route: 065
  52. LANTUS [Concomitant]
     Active Substance: INSULIN GLARGINE
  53. LATANOPROST [Concomitant]
     Active Substance: LATANOPROST
     Indication: Product used for unknown indication
  54. LATANOPROST [Concomitant]
     Active Substance: LATANOPROST
     Route: 065
  55. LATANOPROST [Concomitant]
     Active Substance: LATANOPROST
     Route: 065
  56. LATANOPROST [Concomitant]
     Active Substance: LATANOPROST
  57. LEVOTHYROXINE [Concomitant]
     Active Substance: LEVOTHYROXINE
  58. LEVOTHYROXINE [Concomitant]
     Active Substance: LEVOTHYROXINE
     Route: 065
  59. LEVOTHYROXINE [Concomitant]
     Active Substance: LEVOTHYROXINE
     Route: 065
  60. LEVOTHYROXINE [Concomitant]
     Active Substance: LEVOTHYROXINE
  61. LIPITOR [Concomitant]
     Active Substance: ATORVASTATIN CALCIUM
  62. LIPITOR [Concomitant]
     Active Substance: ATORVASTATIN CALCIUM
     Route: 065
  63. LIPITOR [Concomitant]
     Active Substance: ATORVASTATIN CALCIUM
     Route: 065
  64. LIPITOR [Concomitant]
     Active Substance: ATORVASTATIN CALCIUM
  65. LISINOPRIL [Concomitant]
     Active Substance: LISINOPRIL
  66. LISINOPRIL [Concomitant]
     Active Substance: LISINOPRIL
     Route: 065
  67. LISINOPRIL [Concomitant]
     Active Substance: LISINOPRIL
     Route: 065
  68. LISINOPRIL [Concomitant]
     Active Substance: LISINOPRIL
  69. METFORMIN [Concomitant]
     Active Substance: METFORMIN HYDROCHLORIDE
  70. METFORMIN [Concomitant]
     Active Substance: METFORMIN HYDROCHLORIDE
     Route: 065
  71. METFORMIN [Concomitant]
     Active Substance: METFORMIN HYDROCHLORIDE
     Route: 065
  72. METFORMIN [Concomitant]
     Active Substance: METFORMIN HYDROCHLORIDE
  73. OPSUMIT [Concomitant]
     Active Substance: MACITENTAN
  74. OPSUMIT [Concomitant]
     Active Substance: MACITENTAN
     Route: 065
  75. OPSUMIT [Concomitant]
     Active Substance: MACITENTAN
     Route: 065
  76. OPSUMIT [Concomitant]
     Active Substance: MACITENTAN
  77. OXYGEN [Concomitant]
     Active Substance: OXYGEN
  78. OXYGEN [Concomitant]
     Active Substance: OXYGEN
     Route: 065
  79. OXYGEN [Concomitant]
     Active Substance: OXYGEN
     Route: 065
  80. OXYGEN [Concomitant]
     Active Substance: OXYGEN
  81. SPIRIVA [Concomitant]
     Active Substance: TIOTROPIUM BROMIDE MONOHYDRATE
  82. SPIRIVA [Concomitant]
     Active Substance: TIOTROPIUM BROMIDE MONOHYDRATE
     Route: 065
  83. SPIRIVA [Concomitant]
     Active Substance: TIOTROPIUM BROMIDE MONOHYDRATE
     Route: 065
  84. SPIRIVA [Concomitant]
     Active Substance: TIOTROPIUM BROMIDE MONOHYDRATE
  85. SPIRONOLACTONE [Concomitant]
     Active Substance: SPIRONOLACTONE
  86. SPIRONOLACTONE [Concomitant]
     Active Substance: SPIRONOLACTONE
     Route: 065
  87. SPIRONOLACTONE [Concomitant]
     Active Substance: SPIRONOLACTONE
     Route: 065
  88. SPIRONOLACTONE [Concomitant]
     Active Substance: SPIRONOLACTONE
  89. UPTRAVI [Concomitant]
     Active Substance: SELEXIPAG
     Dosage: 400 MICROGRAM, BID (400 MCG, 2X/DAY)
     Route: 065
  90. UPTRAVI [Concomitant]
     Active Substance: SELEXIPAG
     Dosage: 400 MICROGRAM, BID (400 MCG, 2X/DAY)
  91. UPTRAVI [Concomitant]
     Active Substance: SELEXIPAG
     Dosage: 400 MICROGRAM, BID (400 MCG, 2X/DAY)
  92. UPTRAVI [Concomitant]
     Active Substance: SELEXIPAG
     Dosage: 400 MICROGRAM, BID (400 MCG, 2X/DAY)
     Route: 065
  93. UPTRAVI [Concomitant]
     Active Substance: SELEXIPAG
     Dosage: 1000, BID
  94. UPTRAVI [Concomitant]
     Active Substance: SELEXIPAG
     Dosage: 1000, BID
  95. UPTRAVI [Concomitant]
     Active Substance: SELEXIPAG
     Dosage: 1000, BID
     Route: 065
  96. UPTRAVI [Concomitant]
     Active Substance: SELEXIPAG
     Dosage: 1000, BID
     Route: 065
  97. UPTRAVI [Concomitant]
     Active Substance: SELEXIPAG
     Dosage: UNK, BID (2 EVERY 1 DAYS)
     Route: 065
  98. UPTRAVI [Concomitant]
     Active Substance: SELEXIPAG
     Dosage: UNK, BID (2 EVERY 1 DAYS)
  99. UPTRAVI [Concomitant]
     Active Substance: SELEXIPAG
     Dosage: UNK, BID (2 EVERY 1 DAYS)
  100. UPTRAVI [Concomitant]
     Active Substance: SELEXIPAG
     Dosage: UNK, BID (2 EVERY 1 DAYS)
     Route: 065
  101. VENTOLIN [Concomitant]
     Active Substance: ALBUTEROL SULFATE
  102. VENTOLIN [Concomitant]
     Active Substance: ALBUTEROL SULFATE
     Route: 065
  103. VENTOLIN [Concomitant]
     Active Substance: ALBUTEROL SULFATE
     Route: 065
  104. VENTOLIN [Concomitant]
     Active Substance: ALBUTEROL SULFATE
  105. VITAMIN D [Concomitant]
     Active Substance: VITAMIN D NOS
  106. VITAMIN D [Concomitant]
     Active Substance: VITAMIN D NOS
     Route: 065
  107. VITAMIN D [Concomitant]
     Active Substance: VITAMIN D NOS
     Route: 065
  108. VITAMIN D [Concomitant]
     Active Substance: VITAMIN D NOS
  109. TYLENOL WITH CODEINE [Concomitant]
     Active Substance: ACETAMINOPHEN\CODEINE PHOSPHATE
  110. TYLENOL WITH CODEINE [Concomitant]
     Active Substance: ACETAMINOPHEN\CODEINE PHOSPHATE
     Route: 065
  111. TYLENOL WITH CODEINE [Concomitant]
     Active Substance: ACETAMINOPHEN\CODEINE PHOSPHATE
     Route: 065
  112. TYLENOL WITH CODEINE [Concomitant]
     Active Substance: ACETAMINOPHEN\CODEINE PHOSPHATE
  113. BREO ELLIPTA [Concomitant]
     Active Substance: FLUTICASONE FUROATE\VILANTEROL TRIFENATATE
  114. BREO ELLIPTA [Concomitant]
     Active Substance: FLUTICASONE FUROATE\VILANTEROL TRIFENATATE
     Route: 065
  115. BREO ELLIPTA [Concomitant]
     Active Substance: FLUTICASONE FUROATE\VILANTEROL TRIFENATATE
     Route: 065
  116. BREO ELLIPTA [Concomitant]
     Active Substance: FLUTICASONE FUROATE\VILANTEROL TRIFENATATE
  117. ASPIRIN [Concomitant]
     Active Substance: ASPIRIN
  118. ASPIRIN [Concomitant]
     Active Substance: ASPIRIN
     Route: 065
  119. ASPIRIN [Concomitant]
     Active Substance: ASPIRIN
     Route: 065
  120. ASPIRIN [Concomitant]
     Active Substance: ASPIRIN
  121. ATENOLOL [Concomitant]
     Active Substance: ATENOLOL
  122. ATENOLOL [Concomitant]
     Active Substance: ATENOLOL
     Route: 065
  123. ATENOLOL [Concomitant]
     Active Substance: ATENOLOL
     Route: 065
  124. ATENOLOL [Concomitant]
     Active Substance: ATENOLOL
  125. EXEMESTANE [Concomitant]
     Active Substance: EXEMESTANE
  126. EXEMESTANE [Concomitant]
     Active Substance: EXEMESTANE
     Route: 065
  127. EXEMESTANE [Concomitant]
     Active Substance: EXEMESTANE
     Route: 065
  128. EXEMESTANE [Concomitant]
     Active Substance: EXEMESTANE
  129. GLICLAZIDE [Concomitant]
     Active Substance: GLICLAZIDE
  130. GLICLAZIDE [Concomitant]
     Active Substance: GLICLAZIDE
     Route: 065
  131. GLICLAZIDE [Concomitant]
     Active Substance: GLICLAZIDE
     Route: 065
  132. GLICLAZIDE [Concomitant]
     Active Substance: GLICLAZIDE
  133. LANTUS [Concomitant]
     Active Substance: INSULIN GLARGINE
  134. LANTUS [Concomitant]
     Active Substance: INSULIN GLARGINE
     Route: 065
  135. LANTUS [Concomitant]
     Active Substance: INSULIN GLARGINE
     Route: 065
  136. LANTUS [Concomitant]
     Active Substance: INSULIN GLARGINE
  137. LATANOPROST [Concomitant]
     Active Substance: LATANOPROST
  138. LATANOPROST [Concomitant]
     Active Substance: LATANOPROST
     Route: 065
  139. LATANOPROST [Concomitant]
     Active Substance: LATANOPROST
     Route: 065
  140. LATANOPROST [Concomitant]
     Active Substance: LATANOPROST
  141. LEVOTHYROXINE SODIUM [Concomitant]
     Active Substance: LEVOTHYROXINE SODIUM
  142. LEVOTHYROXINE SODIUM [Concomitant]
     Active Substance: LEVOTHYROXINE SODIUM
     Route: 065
  143. LEVOTHYROXINE SODIUM [Concomitant]
     Active Substance: LEVOTHYROXINE SODIUM
     Route: 065
  144. LEVOTHYROXINE SODIUM [Concomitant]
     Active Substance: LEVOTHYROXINE SODIUM
  145. LISINOPRIL [Concomitant]
     Active Substance: LISINOPRIL
  146. LISINOPRIL [Concomitant]
     Active Substance: LISINOPRIL
     Route: 065
  147. LISINOPRIL [Concomitant]
     Active Substance: LISINOPRIL
     Route: 065
  148. LISINOPRIL [Concomitant]
     Active Substance: LISINOPRIL
  149. OPSUMIT [Concomitant]
     Active Substance: MACITENTAN
  150. OPSUMIT [Concomitant]
     Active Substance: MACITENTAN
     Route: 065
  151. OPSUMIT [Concomitant]
     Active Substance: MACITENTAN
     Route: 065
  152. OPSUMIT [Concomitant]
     Active Substance: MACITENTAN
  153. SPIRONOLACTONE [Concomitant]
     Active Substance: SPIRONOLACTONE
  154. SPIRONOLACTONE [Concomitant]
     Active Substance: SPIRONOLACTONE
     Route: 065
  155. SPIRONOLACTONE [Concomitant]
     Active Substance: SPIRONOLACTONE
     Route: 065
  156. SPIRONOLACTONE [Concomitant]
     Active Substance: SPIRONOLACTONE

REACTIONS (29)
  - Hospitalisation [Not Recovered/Not Resolved]
  - Sensitivity to weather change [Not Recovered/Not Resolved]
  - Oxygen saturation decreased [Not Recovered/Not Resolved]
  - Renal impairment [Not Recovered/Not Resolved]
  - Diarrhoea [Not Recovered/Not Resolved]
  - Pain [Not Recovered/Not Resolved]
  - Arthralgia [Not Recovered/Not Resolved]
  - Infection [Unknown]
  - Hypoaesthesia [Not Recovered/Not Resolved]
  - Musculoskeletal stiffness [Not Recovered/Not Resolved]
  - Joint stiffness [Not Recovered/Not Resolved]
  - Salivary hypersecretion [Not Recovered/Not Resolved]
  - Productive cough [Not Recovered/Not Resolved]
  - Pain in jaw [Not Recovered/Not Resolved]
  - Malaise [Not Recovered/Not Resolved]
  - Dysphagia [Not Recovered/Not Resolved]
  - Temperature intolerance [Unknown]
  - Headache [Not Recovered/Not Resolved]
  - Myalgia [Not Recovered/Not Resolved]
  - Pain in extremity [Not Recovered/Not Resolved]
  - Poor quality sleep [Not Recovered/Not Resolved]
  - Nausea [Not Recovered/Not Resolved]
  - Nasal dryness [Not Recovered/Not Resolved]
  - Dry mouth [Not Recovered/Not Resolved]
  - Gastrooesophageal reflux disease [Not Recovered/Not Resolved]
  - Flushing [Not Recovered/Not Resolved]
  - Erythema [Not Recovered/Not Resolved]
  - Pneumonia [Unknown]
  - Adverse event [Unknown]

NARRATIVE: CASE EVENT DATE: 20211209
